FAERS Safety Report 9285377 (Version 2)
Quarter: 2013Q2

REPORT INFORMATION
  Report Type: Spontaneous
  Country: US (occurrence: US)
  Receive Date: 20130513
  Receipt Date: 20130523
  Transmission Date: 20140414
  Serious: No
  Sender: FDA-Public Use
  Company Number: US-ASTRAZENECA-2013SE24565

PATIENT
  Age: 82 Year
  Sex: Female
  Weight: 72.6 kg

DRUGS (6)
  1. FASLODEX [Suspect]
     Indication: BREAST CANCER
     Route: 030
     Dates: start: 201209
  2. JENUVIA [Concomitant]
     Indication: DIABETES MELLITUS
     Route: 048
  3. AZOR [Concomitant]
     Indication: HYPERTENSION
     Dosage: 10 MG/40 MG DAILY
     Route: 048
  4. FEMARA [Concomitant]
  5. LIPITOR [Concomitant]
  6. VITAMINS [Concomitant]

REACTIONS (2)
  - Dyspnoea [Not Recovered/Not Resolved]
  - Tumour marker increased [Unknown]
